FAERS Safety Report 23533758 (Version 1)
Quarter: 2024Q1

REPORT INFORMATION
  Report Type: Spontaneous
  Country: JP (occurrence: JP)
  Receive Date: 20240216
  Receipt Date: 20240216
  Transmission Date: 20240410
  Serious: Yes (Other)
  Sender: FDA-Public Use
  Company Number: JP-sbiph-S000173710P

PATIENT
  Age: 76 Year
  Sex: Male
  Weight: 67.7 kg

DRUGS (4)
  1. AMINOLEVULINIC ACID HYDROCHLORIDE [Suspect]
     Active Substance: AMINOLEVULINIC ACID HYDROCHLORIDE
     Indication: Bladder transitional cell carcinoma
     Dosage: 1.46 G
     Route: 048
     Dates: start: 20210528, end: 20210528
  2. CEFAZOLIN SODIUM [Concomitant]
     Active Substance: CEFAZOLIN SODIUM
     Indication: Bladder operation
     Route: 042
     Dates: start: 20210528, end: 20210528
  3. Maniheart [Concomitant]
     Indication: Atrial fibrillation
     Route: 048
     Dates: start: 20210528, end: 20210528
  4. VALSARTAN [Concomitant]
     Active Substance: VALSARTAN
     Route: 048

REACTIONS (4)
  - Hypotension [Recovered/Resolved]
  - Tachycardia [Unknown]
  - Atrial fibrillation [Unknown]
  - Vomiting [Unknown]

NARRATIVE: CASE EVENT DATE: 20210528
